FAERS Safety Report 16310341 (Version 1)
Quarter: 2019Q2

REPORT INFORMATION
  Report Type: Spontaneous
  Country: US (occurrence: US)
  Receive Date: 20190513
  Receipt Date: 20190513
  Transmission Date: 20190711
  Serious: Yes (Other)
  Sender: FDA-Public Use
  Company Number: None

PATIENT
  Age: 21 Year
  Sex: Female
  Weight: 126 kg

DRUGS (1)
  1. TERBUTALINE [Suspect]
     Active Substance: TERBUTALINE
     Indication: PREMATURE LABOUR
     Dosage: ?          QUANTITY:1 MILLILITRES;OTHER FREQUENCY:1 SHOT;?
     Route: 058
     Dates: start: 20190513, end: 20190513

REACTIONS (4)
  - Heart rate increased [None]
  - Feeling jittery [None]
  - Maternal exposure during pregnancy [None]
  - Anxiety [None]

NARRATIVE: CASE EVENT DATE: 20190513
